FAERS Safety Report 19168347 (Version 1)
Quarter: 2021Q2

REPORT INFORMATION
  Report Type: Other
  Country: US (occurrence: US)
  Receive Date: 20210422
  Receipt Date: 20210422
  Transmission Date: 20210717
  Serious: Yes (Life-Threatening, Hospitalization, Other)
  Sender: FDA-Public Use
  Company Number: US-APPCO PHARMA LLC-2109610

PATIENT
  Age: 19 Year
  Sex: Female

DRUGS (2)
  1. HYDROXYCHLOROQUINE SULFATE. [Suspect]
     Active Substance: HYDROXYCHLOROQUINE SULFATE
     Indication: COVID-19
     Route: 065
  2. DEFERASIROX. [Suspect]
     Active Substance: DEFERASIROX
     Route: 065

REACTIONS (5)
  - Hyperammonaemia [Recovering/Resolving]
  - Off label use [Unknown]
  - Multiple organ dysfunction syndrome [Recovering/Resolving]
  - Hepatic encephalopathy [Recovering/Resolving]
  - Acute hepatic failure [Recovering/Resolving]
